FAERS Safety Report 6946629-8 (Version None)
Quarter: 2010Q3

REPORT INFORMATION
  Report Type: 
  Country: None (occurrence: None)
  Receive Date: 20100825
  Receipt Date: 20100818
  Transmission Date: 20110219
  Serious: Yes (Other)
  Sender: FDA-Public Use
  Company Number: 2010MA001865

PATIENT
  Age: 89 Year
  Sex: Female

DRUGS (5)
  1. CITALOPRAM HYDROBROMIDE [Suspect]
     Dosage: 40 MG;
  2. TRAMADOL HYDROCHLORIDE [Suspect]
     Indication: PAIN
     Dosage: 150 MG;
  3. TRYPTOPHAN [Concomitant]
  4. VALPROATE SODIUM [Concomitant]
  5. TEMAZEPAM [Concomitant]

REACTIONS (3)
  - DELIRIUM [None]
  - HIP FRACTURE [None]
  - SEROTONIN SYNDROME [None]
